FAERS Safety Report 12675156 (Version 2)
Quarter: 2016Q4

REPORT INFORMATION
  Report Type: Spontaneous
  Country: US (occurrence: US)
  Receive Date: 20160822
  Receipt Date: 20161026
  Transmission Date: 20170207
  Serious: No
  Sender: FDA-Public Use
  Company Number: US-009507513-1608USA005380

PATIENT
  Sex: Female

DRUGS (1)
  1. NOROXIN [Suspect]
     Active Substance: NORFLOXACIN
     Route: 048

REACTIONS (1)
  - Drug hypersensitivity [Unknown]
